FAERS Safety Report 7057515-X (Version None)
Quarter: 2010Q4

REPORT INFORMATION
  Report Type: 
  Country: None (occurrence: None)
  Receive Date: 20101022
  Receipt Date: 20101014
  Transmission Date: 20110411
  Serious: Yes (Other)
  Sender: FDA-Public Use
  Company Number: PHHY2010MX69427

PATIENT
  Age: 67 Year
  Sex: Female

DRUGS (1)
  1. STALEVO 100 [Suspect]
     Indication: CONVULSION
     Dosage: 2 DF DAILY
     Dates: start: 20081101

REACTIONS (4)
  - DISORIENTATION [None]
  - FALL [None]
  - RIB FRACTURE [None]
  - SPINAL COLUMN INJURY [None]
